FAERS Safety Report 5695264-0 (Version None)
Quarter: 2008Q2

REPORT INFORMATION
  Report Type: 
  Country: None (occurrence: None)
  Receive Date: 20080404
  Receipt Date: 20080403
  Transmission Date: 20081010
  Serious: Yes (Death, Hospitalization, Other)
  Sender: FDA-Public Use
  Company Number: JP-BOEHRINGER INGELHEIM GMBH, GERMANY-2007-BP-20709NB

PATIENT
  Sex: Male
  Weight: 73 kg

DRUGS (2)
  1. MICARDIS [Suspect]
     Indication: HYPERTENSION
     Route: 048
     Dates: start: 20060905, end: 20061212
  2. ALLOPURINOL [Concomitant]
     Route: 048
     Dates: start: 20061206

REACTIONS (2)
  - BILE DUCT CANCER [None]
  - JAUNDICE [None]
